FAERS Safety Report 6844369-7 (Version None)
Quarter: 2010Q3

REPORT INFORMATION
  Report Type: 
  Country: None (occurrence: None)
  Receive Date: 20100712
  Receipt Date: 20100629
  Transmission Date: 20110219
  Serious: Yes (Other)
  Sender: FDA-Public Use
  Company Number: 013866

PATIENT
  Sex: Male

DRUGS (1)
  1. CIMZIA [Suspect]
     Dosage: (INITIALLY 400 MG X2 AND THEN TWICE 200 MG EVERY 2ND WEEK SUBCUTANEOUS, (SUBCUTANEOUS)
     Route: 058
     Dates: start: 20100201, end: 20100301

REACTIONS (1)
  - PULMONARY TUBERCULOSIS [None]
